FAERS Safety Report 4684447-4 (Version None)
Quarter: 2005Q2

REPORT INFORMATION
  Report Type: 
  Country: None (occurrence: None)
  Receive Date: 20050531
  Receipt Date: 20050301
  Transmission Date: 20051028
  Serious: Yes (Other)
  Sender: FDA-Public Use
  Company Number: USA040669983

PATIENT
  Age: 59 Year
  Sex: Male
  Weight: 136 kg

DRUGS (44)
  1. ZYPREXA [Suspect]
     Indication: BIPOLAR DISORDER
     Dosage: 40 MG DAY
     Dates: start: 19980101, end: 20030101
  2. WELLBUTRIN [Concomitant]
  3. REMERON [Concomitant]
  4. PAXIL [Concomitant]
  5. NEURONTIN [Concomitant]
  6. KLONOPIN [Concomitant]
  7. SEROQUEL [Concomitant]
  8. ACETYLSALICYLIC ACID SRT [Concomitant]
  9. REGLAN [Concomitant]
  10. LASIX [Concomitant]
  11. PRILOSEC (OMEPRAZOLE RATIOPHARM) [Concomitant]
  12. PRAVACHOL [Concomitant]
  13. FISH OIL [Concomitant]
  14. VITAMIN E [Concomitant]
  15. TOPIRAMATE [Concomitant]
  16. MULTI-VITAMIN [Concomitant]
  17. VIOXX [Concomitant]
  18. PROPULSID [Concomitant]
  19. CELEXA [Concomitant]
  20. LUVOX [Concomitant]
  21. PROPRANOLOL [Concomitant]
  22. CYCLOBENZAPRINE HCL [Concomitant]
  23. ELOCON [Concomitant]
  24. NITROQUICK (GLYCERYL TRINITRATE) [Concomitant]
  25. TRIMAX [Concomitant]
  26. SONATA [Concomitant]
  27. CEPHALEXIN [Concomitant]
  28. DESONIDE [Concomitant]
  29. DEMADEX [Concomitant]
  30. HYDROCORTISONE-NEOMYCIN-POLYMYXIN B [Concomitant]
  31. AMBIEN [Concomitant]
  32. EFFEXOR [Concomitant]
  33. DOXEPIN HCL [Concomitant]
  34. MIRALAX [Concomitant]
  35. AUGMENTIN [Concomitant]
  36. CORTISPORIN [Concomitant]
  37. ZITHROMAX [Concomitant]
  38. ZELNORM [Concomitant]
  39. AMOXICILLIN [Concomitant]
  40. DEPAKOTE [Concomitant]
  41. NEXIUM [Concomitant]
  42. RISPERIDONE [Concomitant]
  43. ALEVE [Concomitant]
  44. ARTHROTEC [Concomitant]

REACTIONS (32)
  - ANXIETY [None]
  - APATHY [None]
  - BLOOD CHLORIDE INCREASED [None]
  - BUNDLE BRANCH BLOCK LEFT [None]
  - CARDIAC FAILURE CONGESTIVE [None]
  - CHEST DISCOMFORT [None]
  - CHEST PAIN [None]
  - CONSTIPATION [None]
  - DEPRESSED MOOD [None]
  - DEPRESSION [None]
  - DIABETES MELLITUS NON-INSULIN-DEPENDENT [None]
  - DIABETIC CARDIOMYOPATHY [None]
  - DYSPHONIA [None]
  - DYSPNOEA EXERTIONAL [None]
  - ECZEMA [None]
  - FATIGUE [None]
  - FOREIGN BODY SENSATION IN EYES [None]
  - GLUCOSE TOLERANCE IMPAIRED [None]
  - HYPOGLYCAEMIA [None]
  - LARYNGITIS [None]
  - MANIA [None]
  - NAIL INFECTION [None]
  - ONYCHOMYCOSIS [None]
  - PERIPHERAL SENSORY NEUROPATHY [None]
  - PHARYNGOLARYNGEAL PAIN [None]
  - PRESCRIBED OVERDOSE [None]
  - ROSACEA [None]
  - SEDATION [None]
  - SOMNOLENCE [None]
  - UPPER RESPIRATORY TRACT INFECTION [None]
  - VISION BLURRED [None]
  - WEIGHT INCREASED [None]
